FAERS Safety Report 16655414 (Version 1)
Quarter: 2019Q3

REPORT INFORMATION
  Report Type: Spontaneous
  Country: US (occurrence: US)
  Receive Date: 20190801
  Receipt Date: 20190801
  Transmission Date: 20191004
  Serious: No
  Sender: FDA-Public Use
  Company Number: US-AUROBINDO-AUR-APU-2018-040339

PATIENT
  Sex: Female

DRUGS (1)
  1. RAMIPRIL CAPSULES USP 10MG [Suspect]
     Active Substance: RAMIPRIL
     Indication: BLOOD PRESSURE INCREASED
     Dosage: UNK
     Route: 048

REACTIONS (2)
  - Product taste abnormal [Unknown]
  - Hepatic enzyme increased [Unknown]
